FAERS Safety Report 4717203-9 (Version None)
Quarter: 2005Q3

REPORT INFORMATION
  Report Type: 
  Country: None (occurrence: None)
  Receive Date: 20050715
  Receipt Date: 20050630
  Transmission Date: 20060218
  Serious: Yes (Death, Hospitalization)
  Sender: FDA-Public Use
  Company Number: FR-2005-000897

PATIENT
  Age: 56 Year
  Sex: Male
  Weight: 70 kg

DRUGS (10)
  1. FLUDARA [Suspect]
     Indication: NON-HODGKIN'S LYMPHOMA
     Dosage: 25 MG/M2, 1X/DAY FOR 5 DAYS, INTRAVENOUS
     Route: 042
     Dates: start: 20040901, end: 20050107
  2. FLUDARA [Suspect]
     Indication: NON-HODGKIN'S LYMPHOMA
     Dosage: 25 MG/M2, 1X/DAY FOR 5 DAYS, INTRAVENOUS
     Route: 042
     Dates: start: 20050101, end: 20050107
  3. FLUDARA [Suspect]
     Indication: NON-HODGKIN'S LYMPHOMA
     Dosage: 25 MG/M2, 1X/DAY FOR 5 DAYS, INTRAVENOUS
     Route: 042
     Dates: start: 20040801
  4. FLUDARA [Suspect]
     Indication: NON-HODGKIN'S LYMPHOMA
     Dosage: 25 MG/M2, 1X/DAY FOR 5 DAYS, INTRAVENOUS
     Route: 042
     Dates: start: 20041001
  5. FLUDARA [Suspect]
     Indication: NON-HODGKIN'S LYMPHOMA
     Dosage: 25 MG/M2, 1X/DAY FOR 5 DAYS, INTRAVENOUS
     Route: 042
     Dates: start: 20041101
  6. FLUDARA [Suspect]
     Indication: NON-HODGKIN'S LYMPHOMA
     Dosage: 25 MG/M2, 1X/DAY FOR 5 DAYS, INTRAVENOUS
     Route: 042
     Dates: start: 20041201
  7. ZELITREX /DEN/ (VALACICLOVIR) 500 MG [Suspect]
     Indication: HERPES VIRUS INFECTION
     Dosage: ORAL
     Route: 048
     Dates: start: 20040801
  8. ZELITREX /DEN/ (VALACICLOVIR) 500 MG [Suspect]
     Indication: PROPHYLAXIS
     Dosage: ORAL
     Route: 048
     Dates: start: 20040801
  9. BACTRIM FORTE (TRIMETHOPRINE, SULFAMETHOXAZOLE) [Suspect]
     Indication: INFECTION PROPHYLAXIS
     Dosage: 1 TAB X 3/WEEK, ORAL
     Route: 048
  10. NEULASTA [Concomitant]

REACTIONS (3)
  - GUILLAIN-BARRE SYNDROME [None]
  - IMMUNOSUPPRESSION [None]
  - INFECTION [None]
